FAERS Safety Report 12605071 (Version 2)
Quarter: 2016Q3

REPORT INFORMATION
  Report Type: Report from Study
  Country: US (occurrence: US)
  Receive Date: 20160728
  Receipt Date: 20160829
  Transmission Date: 20161109
  Serious: Yes (Hospitalization, Other)
  Sender: FDA-Public Use
  Company Number: US-ABBVIE-16K-163-1682277-00

PATIENT
  Sex: Male

DRUGS (1)
  1. HUMIRA [Suspect]
     Active Substance: ADALIMUMAB
     Indication: CROHN^S DISEASE
     Route: 058
     Dates: start: 20160224

REACTIONS (4)
  - Intestinal obstruction [Recovering/Resolving]
  - Crohn^s disease [Unknown]
  - Anal fistula [Unknown]
  - Small intestinal stenosis [Unknown]

NARRATIVE: CASE EVENT DATE: 2016
